FAERS Safety Report 6429478-9 (Version None)
Quarter: 2009Q4

REPORT INFORMATION
  Report Type: 
  Country: None (occurrence: None)
  Receive Date: 20091105
  Receipt Date: 20090914
  Transmission Date: 20100525
  Serious: No
  Sender: FDA-Public Use
  Company Number: US-ABBOTT-09P-163-0597016-00

PATIENT
  Age: 26 Year
  Sex: Female

DRUGS (6)
  1. KALETRA [Suspect]
     Indication: ANTIRETROVIRAL THERAPY
     Dosage: 4 DAILY
     Route: 048
     Dates: start: 20070130
  2. COMBIVIR [Suspect]
     Indication: ANTIRETROVIRAL THERAPY
     Dosage: 2 DAILY
     Route: 048
     Dates: start: 20070130
  3. EPIVIR [Suspect]
     Indication: ANTIRETROVIRAL THERAPY
     Dosage: DAILY
     Route: 048
     Dates: start: 20070516
  4. ZERIT [Suspect]
     Indication: ANTIRETROVIRAL THERAPY
     Dosage: DAILY
     Route: 048
     Dates: start: 20070516
  5. RETROVIR [Suspect]
     Indication: ANTIRETROVIRAL THERAPY
     Route: 042
     Dates: start: 20070612, end: 20070612
  6. RETROVIR [Suspect]
     Route: 042
     Dates: start: 20070612, end: 20070612

REACTIONS (2)
  - FOETAL GROWTH RETARDATION [None]
  - OLIGOHYDRAMNIOS [None]
